FAERS Safety Report 15558074 (Version 1)
Quarter: 2018Q4

REPORT INFORMATION
  Report Type: Spontaneous
  Country: US (occurrence: US)
  Receive Date: 20181027
  Receipt Date: 20181027
  Transmission Date: 20190205
  Serious: No
  Sender: FDA-Public Use
  Company Number: US-009507513-1810USA010590

PATIENT
  Age: 35 Year
  Sex: Female

DRUGS (14)
  1. GONADOTROPIN, CHORIONIC [Concomitant]
     Active Substance: CHORIOGONADOTROPIN ALFA
  2. FOLLISTIM AQ [Suspect]
     Active Substance: FOLLITROPIN
     Indication: INFERTILITY
     Dosage: STRENGTH: 900 UI/ 1.08 ML; 300 INTERNATIONAL UNIT, QD FOR 10-14 DAYS
     Route: 058
     Dates: start: 20180309
  3. MINIVELLE [Concomitant]
     Active Substance: ESTRADIOL
  4. CLOMIPHENE CITRATE. [Concomitant]
     Active Substance: CLOMIPHENE CITRATE
  5. AZITHROMYCIN ANHYDROUS. [Concomitant]
     Active Substance: AZITHROMYCIN ANHYDROUS
  6. ASPIRIN. [Concomitant]
     Active Substance: ASPIRIN
  7. DEXAMETHASONE. [Concomitant]
     Active Substance: DEXAMETHASONE
  8. LEVOTHYROXINE SODIUM. [Concomitant]
     Active Substance: LEVOTHYROXINE SODIUM
     Dosage: STRENGTH: 50 MCG
  9. FEROSUL [Concomitant]
  10. MENOPUR [Concomitant]
     Active Substance: FOLLITROPIN\LUTEINIZING HORMONE
  11. ESTRADIOL. [Concomitant]
     Active Substance: ESTRADIOL
  12. LETROZOLE. [Concomitant]
     Active Substance: LETROZOLE
  13. GANIRELIX ACETATE. [Concomitant]
     Active Substance: GANIRELIX ACETATE
     Dosage: STRENGTH: 250 MCG
  14. CRINONE [Concomitant]
     Active Substance: PROGESTERONE

REACTIONS (1)
  - Headache [Not Recovered/Not Resolved]

NARRATIVE: CASE EVENT DATE: 20181022
